FAERS Safety Report 6129012-7 (Version None)
Quarter: 2009Q1

REPORT INFORMATION
  Report Type: 
  Country: None (occurrence: None)
  Receive Date: 20090324
  Receipt Date: 20090317
  Transmission Date: 20090719
  Serious: Yes (Other)
  Sender: FDA-Public Use
  Company Number: PHHY2009FR10212

PATIENT

DRUGS (1)
  1. NEORAL [Suspect]

REACTIONS (1)
  - INTRACRANIAL PRESSURE INCREASED [None]
